FAERS Safety Report 4351471-0 (Version None)
Quarter: 2004Q2

REPORT INFORMATION
  Report Type: 
  Country: None (occurrence: None)
  Receive Date: 20040430
  Receipt Date: 20040430
  Transmission Date: 20050107
  Serious: Yes (Hospitalization)
  Sender: FDA-Public Use
  Company Number: None

PATIENT
  Age: 76 Year
  Sex: Female
  Weight: 110.6777 kg

DRUGS (13)
  1. CLODRONATE/ LEIRAS OY [Suspect]
     Indication: METASTASES TO BONE
     Dosage: 1600 MG ONCE DAILY ORAL
     Route: 048
     Dates: start: 20030127, end: 20030423
  2. METOPROLOL SUCCINATE [Concomitant]
  3. AMIODARONE [Concomitant]
  4. COZAAR [Concomitant]
  5. LEVOTHYROXINE [Concomitant]
  6. FUROSMIDE [Concomitant]
  7. K-DUR 10 [Concomitant]
  8. CELEBREX [Concomitant]
  9. ALLEGRA [Concomitant]
  10. CALCIUM [Concomitant]
  11. MULTI-VITAMIN [Concomitant]
  12. EFFEXOR [Concomitant]
  13. TAMOXIFEN CITRATE [Concomitant]

REACTIONS (17)
  - ALANINE AMINOTRANSFERASE INCREASED [None]
  - AORTIC VALVE INCOMPETENCE [None]
  - AORTIC VALVE SCLEROSIS [None]
  - ASPARTATE AMINOTRANSFERASE INCREASED [None]
  - BLOOD ALKALINE PHOSPHATASE INCREASED [None]
  - BLOOD GLUCOSE INCREASED [None]
  - CARDIAC FAILURE CONGESTIVE [None]
  - CHEST DISCOMFORT [None]
  - CHEST PAIN [None]
  - DYSPNOEA AT REST [None]
  - ECHOCARDIOGRAM ABNORMAL [None]
  - EJECTION FRACTION DECREASED [None]
  - LABORATORY TEST ABNORMAL [None]
  - MITRAL VALVE INCOMPETENCE [None]
  - PNEUMONIA [None]
  - PULMONARY OEDEMA [None]
  - TRICUSPID VALVE INCOMPETENCE [None]
